FAERS Safety Report 7146316-X (Version None)
Quarter: 2010Q4

REPORT INFORMATION
  Report Type: 
  Country: None (occurrence: None)
  Receive Date: 20101208
  Receipt Date: 20101202
  Transmission Date: 20110411
  Serious: Yes (Hospitalization, Other)
  Sender: FDA-Public Use
  Company Number: US-PFIZER INC-2010163902

PATIENT
  Sex: Female

DRUGS (1)
  1. LYBREL [Suspect]
     Dosage: UNK
     Dates: start: 20090130

REACTIONS (4)
  - DEEP VEIN THROMBOSIS [None]
  - PLEURITIC PAIN [None]
  - PULMONARY EMBOLISM [None]
  - SOFT TISSUE INJURY [None]
